FAERS Safety Report 5993001-3 (Version None)
Quarter: 2008Q4

REPORT INFORMATION
  Report Type: 
  Country: None (occurrence: None)
  Receive Date: 20081212
  Receipt Date: 20080530
  Transmission Date: 20090506
  Serious: No
  Sender: FDA-Public Use
  Company Number: US-AMGEN-KDL283559

PATIENT
  Sex: Male

DRUGS (2)
  1. ENBREL [Suspect]
     Indication: PSORIATIC ARTHROPATHY
     Route: 058
     Dates: start: 20021201
  2. ENBREL [Suspect]
     Indication: PSORIASIS

REACTIONS (5)
  - COUGH [None]
  - INFLAMMATION [None]
  - PSORIASIS [None]
  - RESPIRATORY TRACT CONGESTION [None]
  - THROAT IRRITATION [None]
